FAERS Safety Report 22603883 (Version 1)
Quarter: 2023Q2

REPORT INFORMATION
  Report Type: Spontaneous
  Country: US (occurrence: US)
  Receive Date: 20230615
  Receipt Date: 20230615
  Transmission Date: 20230722
  Serious: Yes (Hospitalization, Other)
  Sender: FDA-Public Use
  Company Number: US-JNJFOC-20230616591

PATIENT
  Sex: Male

DRUGS (1)
  1. DARATUMUMAB [Suspect]
     Active Substance: DARATUMUMAB
     Indication: Plasma cell myeloma
     Route: 042

REACTIONS (6)
  - Anxiety [Recovered/Resolved]
  - Chills [Recovered/Resolved]
  - Malaise [Unknown]
  - Infusion related reaction [Unknown]
  - Plasma cell myeloma [Unknown]
  - Cytopenia [Unknown]
